FAERS Safety Report 20770351 (Version 1)
Quarter: 2022Q2

REPORT INFORMATION
  Report Type: Spontaneous
  Country: SE (occurrence: SE)
  Receive Date: 20220429
  Receipt Date: 20220429
  Transmission Date: 20220721
  Serious: Yes (Hospitalization)
  Sender: FDA-Public Use
  Company Number: ALC2021SE006993

PATIENT

DRUGS (1)
  1. POVIDONE [Suspect]
     Active Substance: POVIDONE
     Indication: Dry eye
     Dosage: 50 MG/ML
     Route: 047

REACTIONS (1)
  - Eye pain [Recovered/Resolved]

NARRATIVE: CASE EVENT DATE: 20160101
